APPROVED DRUG PRODUCT: ACTIVELLA
Active Ingredient: ESTRADIOL; NORETHINDRONE ACETATE
Strength: 0.5MG;0.1MG **Federal Register determination that product was not discontinued or withdrawn for safety or effectiveness reasons**
Dosage Form/Route: TABLET;ORAL
Application: N020907 | Product #002
Applicant: AMNEAL PHARMACEUTICALS LLC
Approved: Dec 28, 2006 | RLD: Yes | RS: No | Type: DISCN